FAERS Safety Report 6658626-0 (Version None)
Quarter: 2010Q1

REPORT INFORMATION
  Report Type: 
  Country: None (occurrence: None)
  Receive Date: 20100330
  Receipt Date: 20100325
  Transmission Date: 20100710
  Serious: Yes (Hospitalization)
  Sender: FDA-Public Use
  Company Number: JP-BRISTOL-MYERS SQUIBB COMPANY-15012966

PATIENT
  Age: 74 Year
  Sex: Male
  Weight: 52 kg

DRUGS (4)
  1. ERBITUX [Suspect]
     Indication: COLON CANCER
     Dosage: 8SEP09:360MG 15DEC2009:14INF 26JAN2010 5FEB2010:17INF
     Route: 042
     Dates: start: 20090901, end: 20100205
  2. LOPEMIN [Concomitant]
     Dosage: CAPS
     Route: 048
     Dates: start: 20050101
  3. POLARAMINE [Concomitant]
     Indication: PREMEDICATION
     Route: 042
     Dates: start: 20090901, end: 20100205
  4. DEXART [Concomitant]
     Indication: PREMEDICATION
     Route: 042
     Dates: start: 20090901, end: 20100205

REACTIONS (2)
  - DECREASED APPETITE [None]
  - DIARRHOEA [None]
